FAERS Safety Report 6304568-X (Version None)
Quarter: 2009Q3

REPORT INFORMATION
  Report Type: 
  Country: None (occurrence: None)
  Receive Date: 20090806
  Receipt Date: 20090723
  Transmission Date: 20100115
  Serious: Yes (Death, Hospitalization)
  Sender: FDA-Public Use
  Company Number: 2009-02888

PATIENT
  Age: 59 Year
  Sex: Male
  Weight: 51 kg

DRUGS (1)
  1. VELCADE [Suspect]
     Indication: MULTIPLE MYELOMA
     Dosage: INTRAVENOUS
     Route: 042
     Dates: start: 20080609, end: 20080619

REACTIONS (4)
  - DISEASE PROGRESSION [None]
  - HERPES ZOSTER [None]
  - IMPAIRED HEALING [None]
  - INADEQUATE ANALGESIA [None]
